FAERS Safety Report 6298875-7 (Version None)
Quarter: 2009Q3

REPORT INFORMATION
  Report Type: 
  Country: None (occurrence: None)
  Receive Date: 20090731
  Receipt Date: 20081017
  Transmission Date: 20100115
  Serious: Yes (Hospitalization)
  Sender: FDA-Public Use
  Company Number: 2008SP02814

PATIENT
  Age: 62 Year
  Sex: Male

DRUGS (4)
  1. RIBAVIRIN [Suspect]
     Indication: HEPATITIS C
     Dates: end: 20061101
  2. INTERFERON ALFA-2B RECOMBINANT (S-P) [Suspect]
     Indication: HEPATITIS C
     Dates: end: 20061101
  3. PROCRIT [Suspect]
     Indication: ANAEMIA
     Dosage: 40000 DF; QW; SC
     Route: 058
     Dates: start: 20060101, end: 20070228
  4. PROCRIT [Suspect]
     Indication: ANAEMIA
     Dosage: 40000 DF; QW; SC
     Route: 058
     Dates: start: 20070307

REACTIONS (5)
  - ANAEMIA [None]
  - ANGIOPATHY [None]
  - APLASIA PURE RED CELL [None]
  - DRUG INEFFECTIVE [None]
  - FATIGUE [None]
